FAERS Safety Report 5165051-0 (Version None)
Quarter: 2006Q4

REPORT INFORMATION
  Report Type: 
  Country: None (occurrence: None)
  Receive Date: 20061124
  Receipt Date: 20061113
  Transmission Date: 20070319
  Serious: Yes (Hospitalization)
  Sender: FDA-Public Use
  Company Number: 2006098690

PATIENT
  Age: 51 Year
  Sex: Female
  Weight: 75 kg

DRUGS (6)
  1. NEURONTIN [Suspect]
     Indication: PAIN
     Dosage: 400 + 100 MG (1 D), ORAL
     Route: 048
     Dates: start: 20030101
  2. TRAMADOL HCL [Suspect]
     Indication: PAIN
     Dosage: 200 MG (100 MG), ORAL
     Route: 048
     Dates: start: 20030101
  3. SPIRONOLACTONE [Suspect]
     Dosage: ORAL
     Route: 048
  4. DANTRIUM [Suspect]
     Dosage: ORAL
     Route: 048
  5. LEVOTHYROXINE SODIUM [Suspect]
     Dosage: ORAL
     Route: 048
  6. SINTROM [Suspect]
     Dosage: ORAL
     Route: 048

REACTIONS (2)
  - DRUG INTERACTION [None]
  - WEIGHT INCREASED [None]
